FAERS Safety Report 7797739-7 (Version None)
Quarter: 2011Q4

REPORT INFORMATION
  Report Type: 
  Country: None (occurrence: None)
  Receive Date: 20111005
  Receipt Date: 20110928
  Transmission Date: 20120403
  Serious: Yes (Other)
  Sender: FDA-Public Use
  Company Number: PHEH2010US03503

PATIENT
  Sex: Female
  Weight: 88.889 kg

DRUGS (21)
  1. MORPHINE [Concomitant]
  2. WARFARIN SODIUM [Concomitant]
  3. NORVASC [Concomitant]
     Dosage: 10 MG, QD
  4. BENICAR [Concomitant]
     Dosage: 20 MG, QD
  5. METOCLOPRAMIDE [Concomitant]
  6. ONDASETRON [Concomitant]
  7. FUROSEMIDE [Concomitant]
  8. ZOMETA [Suspect]
     Indication: OSTEOARTHRITIS
  9. DILAUDID [Concomitant]
  10. NOVOLOG [Concomitant]
  11. DECADRON [Suspect]
     Dosage: 4 MG, TID
  12. HYDROCHLOROTHIAZIDE [Concomitant]
     Dosage: 25 MG, QD
     Route: 048
  13. OXYCODONE HCL [Concomitant]
  14. IMIPENEM [Concomitant]
  15. ZOMETA [Suspect]
     Indication: MULTIPLE MYELOMA
  16. DECADRON [Suspect]
     Dosage: 4 MG, BID
  17. REVLIMID [Concomitant]
  18. HEPARIN [Concomitant]
  19. MULTI-VITAMIN [Concomitant]
  20. METOPROLOL TARTRATE [Concomitant]
  21. DEXAMETHASONE [Concomitant]

REACTIONS (52)
  - DYSPHAGIA [None]
  - QUALITY OF LIFE DECREASED [None]
  - INTERVERTEBRAL DISC PROTRUSION [None]
  - RENAL FAILURE CHRONIC [None]
  - COMPRESSION FRACTURE [None]
  - SINUS BRADYCARDIA [None]
  - HEPATITIS [None]
  - RENAL FAILURE ACUTE [None]
  - DYSPHONIA [None]
  - OVERDOSE [None]
  - DEFORMITY [None]
  - EMOTIONAL DISTRESS [None]
  - OEDEMA [None]
  - TOOTH AVULSION [None]
  - COAGULOPATHY [None]
  - ABSCESS NECK [None]
  - CARDIAC FAILURE CONGESTIVE [None]
  - ATELECTASIS [None]
  - LOOSE TOOTH [None]
  - DISCOMFORT [None]
  - RESPIRATORY FAILURE [None]
  - NECROTISING FASCIITIS [None]
  - CELLULITIS [None]
  - OSTEONECROSIS OF JAW [None]
  - PAIN [None]
  - INJURY [None]
  - COLON CANCER [None]
  - ANAEMIA [None]
  - ABSCESS JAW [None]
  - BONE PAIN [None]
  - INTERVERTEBRAL DISC DEGENERATION [None]
  - PRURITUS [None]
  - HYPOTENSION [None]
  - OSTEOMYELITIS [None]
  - DEEP VEIN THROMBOSIS [None]
  - LIFE EXPECTANCY SHORTENED [None]
  - PROTEINURIA [None]
  - NEPHROLITHIASIS [None]
  - NEOPLASM MALIGNANT [None]
  - HYPERGLYCAEMIA [None]
  - FEMUR FRACTURE [None]
  - COLONIC POLYP [None]
  - NECK PAIN [None]
  - METASTASES TO BONE [None]
  - NEOPLASM PROGRESSION [None]
  - DYSPNOEA EXERTIONAL [None]
  - PANCYTOPENIA [None]
  - PHARYNGEAL ABSCESS [None]
  - ANXIETY [None]
  - PATHOLOGICAL FRACTURE [None]
  - CARDIOMEGALY [None]
  - CHEST WALL ABSCESS [None]
